FAERS Safety Report 26093993 (Version 1)
Quarter: 2025Q4

REPORT INFORMATION
  Report Type: Spontaneous
  Country: JP (occurrence: JP)
  Receive Date: 20251126
  Receipt Date: 20251126
  Transmission Date: 20260118
  Serious: Yes (Hospitalization, Other)
  Sender: BAYER HEALTHCARE PHARMACEUTICALS INC.
  Company Number: JP-BAYER-2025A153692

PATIENT
  Age: 67 Year
  Sex: Male

DRUGS (2)
  1. NUBEQA [Suspect]
     Active Substance: DAROLUTAMIDE
     Dosage: UNK
  2. DOCETAXEL [Suspect]
     Active Substance: DOCETAXEL
     Dosage: 6 DOSES

REACTIONS (7)
  - Neuropathy peripheral [None]
  - Interstitial lung disease [None]
  - Decreased appetite [None]
  - Dyspnoea [None]
  - Back pain [None]
  - Oedema peripheral [None]
  - Gait disturbance [None]
